FAERS Safety Report 5703858-9 (Version None)
Quarter: 2008Q2

REPORT INFORMATION
  Report Type: 
  Country: None (occurrence: None)
  Receive Date: 20080408
  Receipt Date: 20080328
  Transmission Date: 20081010
  Serious: Yes (Other)
  Sender: FDA-Public Use
  Company Number: 022167

PATIENT
  Age: 19 Year
  Sex: Female
  Weight: 98 kg

DRUGS (1)
  1. PLAN B [Suspect]
     Indication: CONTRACEPTION
     Dosage: 2 TABLET, SINGLE, ORAL
     Route: 048
     Dates: start: 20071228, end: 20071228

REACTIONS (11)
  - ABDOMINAL PAIN UPPER [None]
  - ABORTION MISSED [None]
  - CHEST PAIN [None]
  - DRUG EXPOSURE DURING PREGNANCY [None]
  - FATIGUE [None]
  - HEADACHE [None]
  - NAUSEA [None]
  - PELVIC PAIN [None]
  - UNINTENDED PREGNANCY [None]
  - UTERINE HAEMORRHAGE [None]
  - VISUAL DISTURBANCE [None]
